FAERS Safety Report 15547391 (Version 3)
Quarter: 2020Q3

REPORT INFORMATION
  Report Type: Spontaneous
  Country: US (occurrence: US)
  Receive Date: 20181024
  Receipt Date: 20200929
  Transmission Date: 20201102
  Serious: Yes (Other)
  Sender: FDA-Public Use
  Company Number: US-JNJFOC-20181023500

PATIENT
  Age: 31 Year
  Sex: Female
  Weight: 95.34 kg

DRUGS (2)
  1. STELARA [Suspect]
     Active Substance: USTEKINUMAB
     Indication: PSORIASIS
     Route: 058
     Dates: start: 201501, end: 201705
  2. STELARA [Suspect]
     Active Substance: USTEKINUMAB
     Route: 058
     Dates: start: 201708

REACTIONS (2)
  - Exposure during pregnancy [Recovered/Resolved]
  - Malignant melanoma stage II [Recovering/Resolving]

NARRATIVE: CASE EVENT DATE: 201603
